FAERS Safety Report 12920778 (Version 3)
Quarter: 2016Q4

REPORT INFORMATION
  Report Type: Report from Study
  Country: None (occurrence: NL)
  Receive Date: 20161107
  Receipt Date: 20161201
  Transmission Date: 20170207
  Serious: Yes (Hospitalization, Other)
  Sender: FDA-Public Use
  Company Number: NL-ABBVIE-16K-114-1772635-00

PATIENT
  Age: 81 Year
  Sex: Male
  Weight: 59 kg

DRUGS (5)
  1. PARACETAMOL [Concomitant]
     Active Substance: ACETAMINOPHEN
     Indication: PRODUCT USED FOR UNKNOWN INDICATION
     Route: 048
  2. CALCICHEW [Concomitant]
     Active Substance: CALCIUM CARBONATE
     Indication: PRODUCT USED FOR UNKNOWN INDICATION
  3. AZITHROMYCIN ANHYDROUS. [Concomitant]
     Active Substance: AZITHROMYCIN ANHYDROUS
     Indication: PRODUCT USED FOR UNKNOWN INDICATION
     Route: 048
  4. DUODOPA [Suspect]
     Active Substance: CARBIDOPA\LEVODOPA
     Indication: PARKINSON^S DISEASE
     Route: 050
     Dates: start: 20110210
  5. HYDROXOCOBALAM [Concomitant]
     Indication: PRODUCT USED FOR UNKNOWN INDICATION
     Route: 050

REACTIONS (10)
  - Confusional state [Recovering/Resolving]
  - Delirium [Not Recovered/Not Resolved]
  - Campylobacter gastroenteritis [Unknown]
  - Cardiac failure [Unknown]
  - Gastrointestinal infection [Recovering/Resolving]
  - Loss of consciousness [Recovering/Resolving]
  - Gastroenteritis [Recovering/Resolving]
  - Weight decreased [Recovering/Resolving]
  - Pyrexia [Recovering/Resolving]
  - Calculus bladder [Recovered/Resolved]

NARRATIVE: CASE EVENT DATE: 2014
